FAERS Safety Report 6203399-9 (Version None)
Quarter: 2009Q2

REPORT INFORMATION
  Report Type: 
  Country: None (occurrence: None)
  Receive Date: 20090521
  Receipt Date: 20090506
  Transmission Date: 20091009
  Serious: Yes (Life-Threatening, Hospitalization)
  Sender: FDA-Public Use
  Company Number: 2009S1008602

PATIENT
  Age: 48 Year
  Sex: Female

DRUGS (2)
  1. DOXEPIN HCL [Suspect]
     Indication: DEPRESSION
  2. ZOLPIDEM [Suspect]
     Indication: DRUG USE FOR UNKNOWN INDICATION

REACTIONS (4)
  - COMA [None]
  - CONVULSION [None]
  - OVERDOSE [None]
  - RESPIRATORY FAILURE [None]
